FAERS Safety Report 14072106 (Version 7)
Quarter: 2022Q4

REPORT INFORMATION
  Report Type: Report from Study
  Country: US (occurrence: US)
  Receive Date: 20171010
  Receipt Date: 20221103
  Transmission Date: 20230112
  Serious: No
  Sender: FDA-Public Use
  Company Number: US-SA-2017SA160185

PATIENT
  Age: 28 Year
  Sex: Female
  Weight: 53.5 kg

DRUGS (2)
  1. DUPIXENT [Suspect]
     Active Substance: DUPILUMAB
     Indication: Dermatitis atopic
     Dosage: 600 MG, 1X
     Route: 058
  2. DUPIXENT [Suspect]
     Active Substance: DUPILUMAB
     Dosage: 300 MG,QOW
     Route: 058
     Dates: start: 20170727, end: 2018

REACTIONS (13)
  - Sunburn [Not Recovered/Not Resolved]
  - Photosensitivity reaction [Not Recovered/Not Resolved]
  - Gait disturbance [Recovered/Resolved]
  - Dry skin [Unknown]
  - Skin fissures [Unknown]
  - Stress [Unknown]
  - Injection site haemorrhage [Unknown]
  - Incision site vesicles [Unknown]
  - Pruritus [Unknown]
  - Myalgia [Unknown]
  - Skin exfoliation [Unknown]
  - Injection site bruising [Unknown]
  - Dermatitis atopic [Not Recovered/Not Resolved]

NARRATIVE: CASE EVENT DATE: 20180312
